FAERS Safety Report 10852876 (Version 1)
Quarter: 2015Q1

REPORT INFORMATION
  Report Type: Report from Study
  Country: US (occurrence: US)
  Receive Date: 20150223
  Receipt Date: 20150223
  Transmission Date: 20150721
  Serious: Yes (Hospitalization, Other)
  Sender: FDA-Public Use
  Company Number: US-AMGEN-USASL2015015271

PATIENT
  Age: 57 Year
  Sex: Female

DRUGS (1)
  1. ENBREL [Suspect]
     Active Substance: ETANERCEPT
     Indication: RHEUMATOID ARTHRITIS
     Dosage: 50 MG, QWK
     Route: 065
     Dates: start: 20100813

REACTIONS (17)
  - Finger deformity [Recovered/Resolved]
  - Spinal fusion surgery [Recovered/Resolved]
  - Cyst [Recovered/Resolved]
  - Cataract [Recovered/Resolved]
  - Upper limb fracture [Recovered/Resolved]
  - Pain [Recovered/Resolved]
  - Synovial cyst [Recovered/Resolved]
  - Impaired healing [Unknown]
  - Post procedural complication [Recovered/Resolved]
  - Incision site infection [Recovered/Resolved]
  - Intervertebral disc operation [Recovered/Resolved]
  - Musculoskeletal pain [Recovered/Resolved]
  - Nerve compression [Recovered/Resolved]
  - Fall [Recovered/Resolved]
  - Foot deformity [Recovered/Resolved]
  - Muscle spasms [Recovered/Resolved]
  - Dermatitis [Recovered/Resolved]

NARRATIVE: CASE EVENT DATE: 20111223
